FAERS Safety Report 5642057-6 (Version None)
Quarter: 2008Q1

REPORT INFORMATION
  Report Type: 
  Country: None (occurrence: None)
  Receive Date: 20080227
  Receipt Date: 20080215
  Transmission Date: 20080703
  Serious: Yes (Life-Threatening, Hospitalization)
  Sender: FDA-Public Use
  Company Number: US-PFIZER INC-2008015476

PATIENT
  Sex: Female
  Weight: 31 kg

DRUGS (18)
  1. PREDNISOLONE [Suspect]
     Indication: RHEUMATOID ARTHRITIS
     Dosage: DAILY DOSE:15MG-FREQ:QD
     Route: 048
     Dates: start: 19980101, end: 20061201
  2. PREDNISOLONE [Suspect]
     Dosage: DAILY DOSE:5MG-FREQ:FREQUENCY: 1 IN 1 DAYS
     Dates: start: 20061201, end: 20061201
  3. PREDNISOLONE [Suspect]
     Dosage: DAILY DOSE:20MG-FREQ:FREQUENCY: 1 IN 1 DAYS
  4. ETANERCEPT [Suspect]
     Indication: RHEUMATOID ARTHRITIS
     Dosage: DAILY DOSE:12.5MG
     Route: 058
     Dates: start: 20070503, end: 20070510
  5. ETANERCEPT [Suspect]
     Dosage: DAILY DOSE:25MG-FREQ:FREQUENCY: 1 IN 1 WEEKS
     Route: 058
     Dates: start: 20070514, end: 20070611
  6. ETANERCEPT [Suspect]
     Dosage: DAILY DOSE:12.5MG-FREQ:FREQUENCY: 2 IN 1 WEEKS
     Route: 058
     Dates: start: 20070618, end: 20070705
  7. ETANERCEPT [Suspect]
     Dosage: DAILY DOSE:25MG-FREQ:FREQUENCY: 1 IN 1 WEEKS
     Route: 058
     Dates: start: 20070709, end: 20070709
  8. ETANERCEPT [Suspect]
     Dosage: DAILY DOSE:12.5MG-FREQ:FREQUENCY: 1 IN 1 WEEKS
     Route: 058
     Dates: start: 20070716, end: 20070723
  9. PROMAC /JPN/ [Concomitant]
     Indication: GASTRIC ULCER
     Dosage: DAILY DOSE:.5GRAM
     Route: 048
  10. ALLOPURINOL [Concomitant]
     Indication: HYPERURICAEMIA
     Dosage: DAILY DOSE:100MG
     Route: 048
  11. DIMETICONE [Concomitant]
     Indication: ABDOMINAL DISTENSION
     Dosage: DAILY DOSE:80MG
     Route: 048
  12. ALENDRONATE SODIUM [Concomitant]
     Indication: OSTEOPOROSIS
     Dosage: DAILY DOSE:35MG
     Route: 048
     Dates: start: 20070320, end: 20071127
  13. ALOSENN [Concomitant]
     Indication: CONSTIPATION
     Dosage: DAILY DOSE:2GRAM
     Route: 048
  14. MAGNESIUM OXIDE [Concomitant]
     Indication: CONSTIPATION
     Dosage: DAILY DOSE:1980MG
     Route: 048
  15. ZOLPIDEM TARTRATE [Concomitant]
     Indication: INSOMNIA
     Dosage: DAILY DOSE:10MG
     Route: 048
  16. SOLANAX [Concomitant]
     Indication: INSOMNIA
     Dosage: DAILY DOSE:.4MG
     Route: 048
     Dates: start: 20061002
  17. PREDNISOLONE [Concomitant]
     Dosage: DAILY DOSE:25MG
     Route: 048
  18. SENNOSIDES [Concomitant]
     Indication: CONSTIPATION
     Dosage: DAILY DOSE:48MG
     Route: 048

REACTIONS (6)
  - HAEMORRHAGIC DIATHESIS [None]
  - IMMUNOSUPPRESSION [None]
  - LUNG INFECTION [None]
  - MARROW HYPERPLASIA [None]
  - MELAENA [None]
  - THROMBOCYTOPENIA [None]
